FAERS Safety Report 5739266-4 (Version None)
Quarter: 2008Q2

REPORT INFORMATION
  Report Type: 
  Country: None (occurrence: None)
  Receive Date: 20080515
  Receipt Date: 20080514
  Transmission Date: 20081010
  Serious: Yes (Death)
  Sender: FDA-Public Use
  Company Number: US-BRISTOL-MYERS SQUIBB COMPANY-14192017

PATIENT
  Age: 46 Year
  Sex: Male
  Weight: 95 kg

DRUGS (14)
  1. EFAVIRENZ [Suspect]
     Indication: HIV INFECTION
     Route: 048
     Dates: start: 20060419, end: 20080407
  2. TRUVADA [Suspect]
     Indication: HIV INFECTION
     Route: 048
     Dates: start: 20060419, end: 20080407
  3. EPZICOM [Suspect]
     Indication: HIV INFECTION
     Route: 048
     Dates: start: 20060419, end: 20080407
  4. MIRTAZAPINE [Concomitant]
  5. ZOLOFT [Concomitant]
  6. SOMA [Concomitant]
  7. VICODIN [Concomitant]
  8. SEROQUEL [Concomitant]
  9. AMBIEN [Concomitant]
  10. ATENOLOL [Concomitant]
  11. ZANTAC [Concomitant]
  12. ULTRAM [Concomitant]
  13. VENTOLIN [Concomitant]
  14. COMBIVENT [Concomitant]

REACTIONS (1)
  - HYPERTENSIVE HEART DISEASE [None]
